FAERS Safety Report 15020102 (Version 1)
Quarter: 2018Q2

REPORT INFORMATION
  Report Type: Report from Study
  Country: None (occurrence: US)
  Receive Date: 20180618
  Receipt Date: 20180618
  Transmission Date: 20180711
  Serious: Yes (Other)
  Sender: FDA-Public Use
  Company Number: US-ABBVIE-17K-163-2044398-00

PATIENT
  Age: 57 Year
  Sex: Female

DRUGS (3)
  1. HUMIRA [Suspect]
     Active Substance: ADALIMUMAB
     Route: 058
     Dates: start: 20170824, end: 2017
  2. HUMIRA [Suspect]
     Active Substance: ADALIMUMAB
     Indication: RHEUMATOID ARTHRITIS
     Route: 058
     Dates: start: 20170608, end: 20170823
  3. HUMIRA [Suspect]
     Active Substance: ADALIMUMAB
     Route: 058
     Dates: start: 2017

REACTIONS (25)
  - Loss of personal independence in daily activities [Not Recovered/Not Resolved]
  - Therapeutic response shortened [Unknown]
  - Vulva cyst [Unknown]
  - Gait disturbance [Recovered/Resolved]
  - Arthralgia [Not Recovered/Not Resolved]
  - Carpal tunnel syndrome [Unknown]
  - Mobility decreased [Recovering/Resolving]
  - Joint stiffness [Not Recovered/Not Resolved]
  - Miliaria [Recovering/Resolving]
  - Arthralgia [Not Recovered/Not Resolved]
  - Therapeutic response shortened [Recovered/Resolved]
  - Injection site rash [Recovered/Resolved]
  - Paraesthesia [Unknown]
  - Miliaria [Recovered/Resolved]
  - Hypoaesthesia [Unknown]
  - Injection site reaction [Recovered/Resolved]
  - Pain in extremity [Unknown]
  - Injection site swelling [Unknown]
  - Rheumatoid arthritis [Unknown]
  - Tendon injury [Unknown]
  - Joint swelling [Not Recovered/Not Resolved]
  - Injection site pruritus [Not Recovered/Not Resolved]
  - Injection site erythema [Not Recovered/Not Resolved]
  - Injection site reaction [Unknown]
  - Injection site rash [Not Recovered/Not Resolved]

NARRATIVE: CASE EVENT DATE: 2017
